FAERS Safety Report 5613676-8 (Version None)
Quarter: 2008Q1

REPORT INFORMATION
  Report Type: 
  Country: None (occurrence: None)
  Receive Date: 20080205
  Receipt Date: 20080204
  Transmission Date: 20080703
  Serious: Yes (Hospitalization)
  Sender: FDA-Public Use
  Company Number: FR-RB-009191-08

PATIENT
  Age: 39 Year
  Sex: Female

DRUGS (1)
  1. SUBUTEX [Suspect]
     Indication: DRUG USE FOR UNKNOWN INDICATION
     Route: 065

REACTIONS (6)
  - ADRENAL INSUFFICIENCY [None]
  - DIPLOPIA [None]
  - FATIGUE [None]
  - HEADACHE [None]
  - HYPERPROLACTINAEMIA [None]
  - WEIGHT INCREASED [None]
